FAERS Safety Report 6677702-X (Version None)
Quarter: 2010Q2

REPORT INFORMATION
  Report Type: 
  Country: None (occurrence: None)
  Receive Date: 20100412
  Receipt Date: 20100402
  Transmission Date: 20101027
  Serious: Yes (Other)
  Sender: FDA-Public Use
  Company Number: US-JNJCH-2010008377

PATIENT
  Age: 28 Year
  Sex: Female
  Weight: 55 kg

DRUGS (1)
  1. BENADRYL [Suspect]
     Indication: URTICARIA
     Dosage: TEXT:TWO EVERY FOUR TO SIX HOURS
     Route: 048
     Dates: start: 20100329, end: 20100401

REACTIONS (6)
  - DIZZINESS [None]
  - FEELING OF BODY TEMPERATURE CHANGE [None]
  - NAUSEA [None]
  - OFF LABEL USE [None]
  - SYNCOPE [None]
  - VERTIGO [None]
